FAERS Safety Report 4296325-3 (Version None)
Quarter: 2004Q1

REPORT INFORMATION
  Report Type: 
  Country: None (occurrence: None)
  Receive Date: 20040213
  Receipt Date: 20040213
  Transmission Date: 20041129
  Serious: Yes (Hospitalization)
  Sender: FDA-Public Use
  Company Number: None

PATIENT
  Sex: Male
  Weight: 61.2356 kg

DRUGS (10)
  1. COUMADIN [Suspect]
     Indication: ATRIAL FIBRILLATION
     Dosage: 2 MG PO QD
     Route: 048
  2. COUMADIN [Suspect]
     Indication: MYOCARDIAL INFARCTION
     Dosage: 2 MG PO QD
     Route: 048
  3. NITROGLYCERIN [Concomitant]
  4. LOPRESSOR [Concomitant]
  5. LASIX [Concomitant]
  6. LISINOPRIL [Concomitant]
  7. ALDACTONE [Concomitant]
  8. FLOMAX [Concomitant]
  9. ASPIRIN [Concomitant]
  10. PLAVIX [Concomitant]

REACTIONS (1)
  - COAGULOPATHY [None]
